FAERS Safety Report 8398334-1 (Version None)
Quarter: 2012Q2

REPORT INFORMATION
  Report Type: 
  Country: None (occurrence: None)
  Receive Date: 20120531
  Receipt Date: 20120524
  Transmission Date: 20120825
  Serious: Yes (Hospitalization, Other)
  Sender: FDA-Public Use
  Company Number: BR-PFIZER INC-2012126958

PATIENT
  Age: 27 Year
  Sex: Male

DRUGS (2)
  1. LYRICA [Suspect]
     Dosage: 75 MG, 2X/DAY
     Route: 048
     Dates: start: 20100101
  2. CARBAMAZEPINE [Concomitant]

REACTIONS (3)
  - INFECTION [None]
  - ROAD TRAFFIC ACCIDENT [None]
  - OPEN FRACTURE [None]
